FAERS Safety Report 23551380 (Version 1)
Quarter: 2024Q1

REPORT INFORMATION
  Report Type: Spontaneous
  Country: CN (occurrence: CN)
  Receive Date: 20240222
  Receipt Date: 20240222
  Transmission Date: 20240410
  Serious: Yes (Other)
  Sender: FDA-Public Use
  Company Number: None

PATIENT
  Age: 56 Year
  Sex: Male
  Weight: 80 kg

DRUGS (15)
  1. INSULIN ASPART [Suspect]
     Active Substance: INSULIN ASPART
     Indication: Type 2 diabetes mellitus
     Dosage: 10 IU, BID
     Route: 058
     Dates: start: 20240104, end: 20240111
  2. BUTYLPHTHALIDE [Suspect]
     Active Substance: BUTYLPHTHALIDE
     Indication: Cardiovascular event prophylaxis
     Dosage: 100 ML, BID
     Route: 042
     Dates: start: 20240102, end: 20240111
  3. KALLIDINOGENASE [Suspect]
     Active Substance: KALLIDINOGENASE
     Indication: Diastolic dysfunction
     Dosage: 0.15PNA UNIT
     Route: 042
     Dates: start: 20240104, end: 20240111
  4. PANTOPRAZOLE SODIUM [Suspect]
     Active Substance: PANTOPRAZOLE SODIUM
     Indication: Gastrointestinal disorder prophylaxis
     Dosage: 2.000GRAINS,QD
     Route: 048
     Dates: start: 20240102, end: 20240111
  5. HYZETIMIBE [Suspect]
     Active Substance: HYZETIMIBE
     Indication: Lipids abnormal
     Dosage: 1.000GRAIN,QD
     Route: 048
     Dates: start: 20240111
  6. REBAMIPIDE [Suspect]
     Active Substance: REBAMIPIDE
     Indication: Gastrointestinal disorder prophylaxis
     Dosage: 1.000GRAIN,TID
     Route: 048
     Dates: start: 20240102, end: 20240111
  7. ROSUVASTATIN CALCIUM [Suspect]
     Active Substance: ROSUVASTATIN CALCIUM
     Indication: Lipids abnormal
     Dosage: 2.000GRAINS,QD
     Route: 048
     Dates: start: 20240102, end: 20240111
  8. CLOPIDOGREL BISULFATE [Suspect]
     Active Substance: CLOPIDOGREL BISULFATE
     Indication: Platelet aggregation decreased
     Dosage: 1.000GRAIN,QD
     Route: 048
     Dates: start: 20240103, end: 20240111
  9. CITICOLINE SODIUM [Suspect]
     Active Substance: CITICOLINE SODIUM
     Indication: Cardiovascular event prophylaxis
     Dosage: 1.000GRAIN,TID
     Route: 048
     Dates: start: 20240102
  10. DAPAGLIFLOZIN [Suspect]
     Active Substance: DAPAGLIFLOZIN
     Indication: Type 2 diabetes mellitus
     Dosage: 2.000GRAINS,QD
     Route: 048
     Dates: start: 20240102, end: 20240111
  11. GINKGO BILOBA LEAF EXTRACT [Suspect]
     Active Substance: GINKGO BILOBA LEAF EXTRACT
     Indication: Cardiovascular event prophylaxis
     Dosage: 70 MG, QD
     Route: 042
     Dates: start: 20240103, end: 20240111
  12. ACARBOSE [Suspect]
     Active Substance: ACARBOSE
     Indication: Type 2 diabetes mellitus
     Dosage: 1.000GRAIN,TID
     Route: 048
     Dates: start: 20240108, end: 20240111
  13. ASPIRIN [Suspect]
     Active Substance: ASPIRIN
     Indication: Platelet aggregation decreased
     Dosage: 1.000GRAIN,QD
     Route: 048
     Dates: start: 20240103, end: 20240111
  14. SODIUM CHLORIDE [Concomitant]
     Active Substance: SODIUM CHLORIDE
     Dosage: 100 UNK
     Route: 042
     Dates: start: 20240104, end: 20240111
  15. SODIUM CHLORIDE [Concomitant]
     Active Substance: SODIUM CHLORIDE
     Indication: Vehicle solution use
     Dosage: 250 ML, QD
     Route: 042
     Dates: start: 20240103, end: 20240111

REACTIONS (1)
  - Rash maculo-papular [Recovering/Resolving]

NARRATIVE: CASE EVENT DATE: 20240112
